FAERS Safety Report 12321043 (Version 1)
Quarter: 2016Q2

REPORT INFORMATION
  Report Type: Spontaneous
  Country: ES (occurrence: ES)
  Receive Date: 20160502
  Receipt Date: 20160502
  Transmission Date: 20160815
  Serious: Yes (Hospitalization)
  Sender: FDA-Public Use
  Company Number: ES-ROCHE-1749437

PATIENT
  Age: 76 Year
  Sex: Male

DRUGS (3)
  1. FERROUS SULFATE. [Concomitant]
     Active Substance: FERROUS SULFATE
     Dosage: AT 9.00
     Route: 048
     Dates: start: 20160105, end: 20160112
  2. OLMETEC [Concomitant]
     Active Substance: OLMESARTAN MEDOXOMIL
     Dosage: AT 9
     Route: 048
     Dates: start: 20160105, end: 20160112
  3. ZELBORAF [Suspect]
     Active Substance: VEMURAFENIB
     Indication: MALIGNANT MELANOMA
     Dosage: EVERY 12 HOURS
     Route: 048
     Dates: start: 20160105, end: 20160201

REACTIONS (2)
  - Condition aggravated [Recovered/Resolved]
  - Renal failure [Recovered/Resolved]

NARRATIVE: CASE EVENT DATE: 20160112
